FAERS Safety Report 8676494 (Version 2)
Quarter: 2013Q4

REPORT INFORMATION
  Report Type: Spontaneous
  Country: JP (occurrence: JP)
  Receive Date: 20120720
  Receipt Date: 20131106
  Transmission Date: 20140711
  Serious: Yes (Other)
  Sender: FDA-Public Use
  Company Number: JP-009507513-1203USA02891

PATIENT
  Age: 60 Year
  Sex: Male

DRUGS (2)
  1. GLACTIV [Suspect]
     Indication: TYPE 2 DIABETES MELLITUS
     Dosage: 50 MG, QD
     Route: 048
     Dates: start: 2011, end: 2012
  2. METFORMIN HYDROCHLORIDE [Concomitant]

REACTIONS (2)
  - Stomatitis [Recovered/Resolved]
  - Diarrhoea [Unknown]
